FAERS Safety Report 12468458 (Version 1)
Quarter: 2016Q2

REPORT INFORMATION
  Report Type: Spontaneous
  Country: US (occurrence: US)
  Receive Date: 20160615
  Receipt Date: 20160615
  Transmission Date: 20160815
  Serious: Yes (Hospitalization)
  Sender: FDA-Public Use
  Company Number: US-BIOGEN-2016BI00201698

PATIENT
  Age: 55 Year
  Sex: Male
  Weight: 106.69 kg

DRUGS (24)
  1. BACLOFEN. [Concomitant]
     Active Substance: BACLOFEN
     Indication: MUSCLE RELAXANT THERAPY
     Dosage: BEGAN TAKING WITHIN A YEAR OF BEING DIAGNOSED WITH MS
     Route: 065
     Dates: start: 2006
  2. METFORMIN [Concomitant]
     Active Substance: METFORMIN HYDROCHLORIDE
     Indication: TYPE 2 DIABETES MELLITUS
     Route: 065
     Dates: start: 1996
  3. LYRICA [Concomitant]
     Active Substance: PREGABALIN
     Indication: MULTIPLE SCLEROSIS
     Route: 065
     Dates: start: 2002
  4. CYMBALTA [Concomitant]
     Active Substance: DULOXETINE HYDROCHLORIDE
     Indication: BURNING SENSATION
     Route: 065
     Dates: start: 200602
  5. VITAMIN D3 [Concomitant]
     Active Substance: CHOLECALCIFEROL
     Indication: SUPPLEMENTATION THERAPY
     Route: 065
     Dates: start: 2010
  6. VITAMIN D3 [Concomitant]
     Active Substance: CHOLECALCIFEROL
     Route: 065
     Dates: start: 2013
  7. VITAMIN B12 [Concomitant]
     Active Substance: CYANOCOBALAMIN
     Indication: NERVOUS SYSTEM DISORDER
     Route: 065
     Dates: start: 2006
  8. TECFIDERA [Suspect]
     Active Substance: DIMETHYL FUMARATE
     Route: 065
     Dates: start: 2014
  9. CARBATROL [Concomitant]
     Active Substance: CARBAMAZEPINE
     Indication: PAIN
     Dosage: STARTED IN 2008-2009
     Route: 065
  10. CARBATROL [Concomitant]
     Active Substance: CARBAMAZEPINE
     Route: 065
     Dates: start: 2010
  11. VICTOZA [Concomitant]
     Active Substance: LIRAGLUTIDE
     Route: 065
     Dates: start: 201512
  12. BYDUREON [Concomitant]
     Active Substance: EXENATIDE
     Indication: PRODUCT USED FOR UNKNOWN INDICATION
     Dosage: LASTED FOR 5-6 MONTHS
     Route: 065
  13. POLYETHYLENE GLYCOL [Concomitant]
     Active Substance: POLYETHYLENE GLYCOLS
     Route: 065
     Dates: start: 1990
  14. CYMBALTA [Concomitant]
     Active Substance: DULOXETINE HYDROCHLORIDE
     Indication: MULTIPLE SCLEROSIS
  15. VICTOZA [Concomitant]
     Active Substance: LIRAGLUTIDE
     Route: 065
     Dates: start: 2016
  16. PRAVASTATIN [Concomitant]
     Active Substance: PRAVASTATIN\PRAVASTATIN SODIUM
     Indication: HYPERCHOLESTEROLAEMIA
     Route: 065
     Dates: start: 2015
  17. POLYETHYLENE GLYCOL [Concomitant]
     Active Substance: POLYETHYLENE GLYCOLS
     Indication: CONSTIPATION
     Dosage: 3350 POWDER DISSOLVED IN WATER
     Route: 065
  18. VITAMIN B12 [Concomitant]
     Active Substance: CYANOCOBALAMIN
     Route: 065
     Dates: start: 200602
  19. AMANTADINE [Concomitant]
     Active Substance: AMANTADINE
     Indication: PRODUCT USED FOR UNKNOWN INDICATION
     Route: 065
     Dates: start: 2015
  20. TECFIDERA [Suspect]
     Active Substance: DIMETHYL FUMARATE
     Indication: MULTIPLE SCLEROSIS
     Route: 065
     Dates: start: 2013
  21. BACLOFEN. [Concomitant]
     Active Substance: BACLOFEN
     Route: 065
     Dates: start: 2006
  22. VICTOZA [Concomitant]
     Active Substance: LIRAGLUTIDE
     Indication: TYPE 2 DIABETES MELLITUS
     Route: 065
     Dates: start: 20150208
  23. LYRICA [Concomitant]
     Active Substance: PREGABALIN
     Indication: PAIN IN EXTREMITY
     Route: 065
     Dates: start: 200602
  24. FOLIC ACID. [Concomitant]
     Active Substance: FOLIC ACID
     Indication: NERVOUS SYSTEM DISORDER
     Route: 065
     Dates: start: 200602

REACTIONS (5)
  - Cognitive disorder [Not Recovered/Not Resolved]
  - Drug ineffective [Unknown]
  - Muscle twitching [Unknown]
  - Fall [Recovered/Resolved]
  - Heart rate increased [Recovered/Resolved]

NARRATIVE: CASE EVENT DATE: 20151205
